FAERS Safety Report 6104501-X (Version None)
Quarter: 2009Q1

REPORT INFORMATION
  Report Type: 
  Country: None (occurrence: None)
  Receive Date: 20090305
  Receipt Date: 20090304
  Transmission Date: 20090719
  Serious: No
  Sender: FDA-Public Use
  Company Number: US-B.I. PHARMACEUTICALS,INC./RIDGEFIELD-2009-BP-02584BP

PATIENT
  Age: 55 Year
  Sex: Female

DRUGS (4)
  1. MICARDIS [Suspect]
     Indication: HYPERTENSION
     Dosage: 120MG
     Route: 048
     Dates: start: 20090228
  2. ATIVAN [Concomitant]
     Indication: ANXIETY
  3. ANTIVERT [Concomitant]
     Indication: INNER EAR DISORDER
  4. INSULIN [Concomitant]
     Indication: DIABETES MELLITUS

REACTIONS (2)
  - FATIGUE [None]
  - MEDICATION ERROR [None]
